FAERS Safety Report 8247530-2 (Version None)
Quarter: 2012Q1

REPORT INFORMATION
  Report Type: 
  Country: None (occurrence: None)
  Receive Date: 20120330
  Receipt Date: 20120323
  Transmission Date: 20120608
  Serious: Yes (Hospitalization, Other)
  Sender: FDA-Public Use
  Company Number: US-ALEXION-A201200432

PATIENT
  Sex: Male

DRUGS (3)
  1. AMOXICILLIN [Concomitant]
     Dosage: UNK
  2. VICODIN [Concomitant]
     Indication: PAIN
     Dosage: UNK
  3. SOLIRIS [Suspect]
     Indication: PAROXYSMAL NOCTURNAL HAEMOGLOBINURIA
     Dosage: 900 MG, Q2W
     Route: 042

REACTIONS (2)
  - SUPRAVENTRICULAR TACHYCARDIA [None]
  - GASTROINTESTINAL HAEMORRHAGE [None]
